FAERS Safety Report 22221278 (Version 3)
Quarter: 2023Q4

REPORT INFORMATION
  Report Type: Report from Study
  Country: US (occurrence: US)
  Receive Date: 20230418
  Receipt Date: 20231030
  Transmission Date: 20240109
  Serious: Yes (Hospitalization, Other)
  Sender: FDA-Public Use
  Company Number: US-ABBVIE-4731353

PATIENT
  Sex: Female

DRUGS (2)
  1. HUMIRA [Suspect]
     Active Substance: ADALIMUMAB
     Indication: Juvenile idiopathic arthritis
     Dosage: LAST ADMIN DATE- 2023?CITRATE FREE?FORM STRENGTH: 40 MILLIGRAM
     Route: 058
     Dates: start: 20230103
  2. HUMIRA [Suspect]
     Active Substance: ADALIMUMAB
     Indication: Juvenile idiopathic arthritis
     Dosage: CITRATE FREE FORM STRENGTH 40 MG
     Route: 058
     Dates: start: 20230318

REACTIONS (12)
  - Sepsis [Recovered/Resolved]
  - Joint effusion [Not Recovered/Not Resolved]
  - Gait inability [Recovered/Resolved]
  - Asthenia [Recovered/Resolved]
  - COVID-19 [Recovered/Resolved]
  - Illness [Recovered/Resolved]
  - Weight decreased [Recovered/Resolved]
  - Fracture [Unknown]
  - Pneumonia [Recovered/Resolved]
  - Kidney infection [Recovered/Resolved]
  - Dehydration [Recovered/Resolved]
  - Urticaria [Recovered/Resolved]

NARRATIVE: CASE EVENT DATE: 20230101
